FAERS Safety Report 4965355-8 (Version None)
Quarter: 2006Q2

REPORT INFORMATION
  Report Type: 
  Country: None (occurrence: None)
  Receive Date: 20060406
  Receipt Date: 20051031
  Transmission Date: 20061013
  Serious: Yes (Hospitalization, Disabling)
  Sender: FDA-Public Use
  Company Number: US-MERCK-0511USA00325

PATIENT
  Age: 40 Year
  Sex: Male
  Weight: 105 kg

DRUGS (13)
  1. VIOXX [Suspect]
     Indication: PAIN
     Route: 048
     Dates: start: 19991001, end: 20040801
  2. ASPIRIN [Concomitant]
     Route: 065
     Dates: start: 20020801
  3. MECLIZINE HYDROCHLORIDE [Concomitant]
     Route: 065
  4. DEXAMETHASONE [Concomitant]
     Route: 065
  5. ACETAMINOPHEN AND PROPOXYPHENE NAPSYLATE [Concomitant]
     Route: 065
  6. DIPYRIDAMOLE [Concomitant]
     Route: 065
  7. ATENOLOL [Concomitant]
     Route: 065
  8. CEPHALEXIN [Concomitant]
     Route: 065
  9. BETAMETHASONE AND INDOMETHACIN AND METHOCARBAMOL [Concomitant]
     Route: 065
  10. MICONAZOLE NITRATE [Concomitant]
     Route: 065
  11. GUAIFENESIN AND HYDROCODONE BITARTRATE [Concomitant]
     Route: 065
  12. PENICILLIN (UNSPECIFIED) [Concomitant]
     Route: 065
  13. DICLOFENAC SODIUM [Concomitant]
     Route: 065

REACTIONS (10)
  - ARTHRALGIA [None]
  - ARTHROPOD BITE [None]
  - CEREBROVASCULAR ACCIDENT [None]
  - EPICONDYLITIS [None]
  - ERECTILE DYSFUNCTION [None]
  - HYPERTENSION [None]
  - PERIPHERAL PARALYSIS [None]
  - PRESCRIBED OVERDOSE [None]
  - REVERSIBLE ISCHAEMIC NEUROLOGICAL DEFICIT [None]
  - TRANSIENT ISCHAEMIC ATTACK [None]
